FAERS Safety Report 23286802 (Version 1)
Quarter: 2023Q4

REPORT INFORMATION
  Report Type: Spontaneous
  Country: ES (occurrence: ES)
  Receive Date: 20231212
  Receipt Date: 20231212
  Transmission Date: 20240109
  Serious: Yes (Hospitalization, Other)
  Sender: FDA-Public Use
  Company Number: ES-AEMPS-1456528

PATIENT
  Age: 55 Year
  Sex: Female

DRUGS (1)
  1. LEVOFLOXACIN [Suspect]
     Active Substance: LEVOFLOXACIN
     Indication: Pneumonia
     Dosage: 500 MILLIGRAM, ONCE A DAY
     Route: 048
     Dates: start: 20230930, end: 20231013

REACTIONS (1)
  - Generalised tonic-clonic seizure [Recovered/Resolved]

NARRATIVE: CASE EVENT DATE: 20231017
